FAERS Safety Report 9925227 (Version 1)
Quarter: 2014Q1

REPORT INFORMATION
  Report Type: Spontaneous
  Country: US (occurrence: US)
  Receive Date: 20140226
  Receipt Date: 20140226
  Transmission Date: 20141002
  Serious: Yes (Other)
  Sender: FDA-Public Use
  Company Number: US-BRACCO-009711

PATIENT
  Age: 60 Year
  Sex: Female

DRUGS (4)
  1. PREDNISONE [Concomitant]
  2. ISOVUE 370 [Suspect]
     Indication: CATHETERISATION CARDIAC
     Route: 013
     Dates: start: 20130625, end: 20130625
  3. EPIPEN [Concomitant]
  4. ALBUTEROL [Concomitant]

REACTIONS (1)
  - Acute pulmonary oedema [Unknown]
